FAERS Safety Report 23357907 (Version 1)
Quarter: 2024Q1

REPORT INFORMATION
  Report Type: Spontaneous
  Country: CN (occurrence: CN)
  Receive Date: 20240102
  Receipt Date: 20240102
  Transmission Date: 20240410
  Serious: Yes (Other)
  Sender: FDA-Public Use
  Company Number: CN-PFIZER INC-202300451097

PATIENT
  Age: 6 Year
  Sex: Male
  Weight: 20.5 kg

DRUGS (2)
  1. VORICONAZOLE [Suspect]
     Active Substance: VORICONAZOLE
     Indication: Anti-infective therapy
     Dosage: UNK
     Dates: start: 202312
  2. MEROPENEM [Concomitant]
     Active Substance: MEROPENEM
     Indication: Anti-infective therapy
     Dosage: UNK
     Dates: start: 202312

REACTIONS (3)
  - Amylase increased [Unknown]
  - Myelosuppression [Unknown]
  - Pancreatitis [Unknown]

NARRATIVE: CASE EVENT DATE: 20231214
